FAERS Safety Report 14575807 (Version 2)
Quarter: 2018Q1

REPORT INFORMATION
  Report Type: Spontaneous
  Country: US (occurrence: US)
  Receive Date: 20180227
  Receipt Date: 20180309
  Transmission Date: 20180509
  Serious: Yes (Hospitalization, Other)
  Sender: FDA-Public Use
  Company Number: US-B.I. PHARMACEUTICALS,INC./RIDGEFIELD-2018-BI-009708

PATIENT
  Age: 76 Year
  Sex: Male

DRUGS (2)
  1. SPIRIVA [Suspect]
     Active Substance: TIOTROPIUM BROMIDE MONOHYDRATE
     Indication: CHRONIC OBSTRUCTIVE PULMONARY DISEASE
     Dosage: ADMINISTRATION CORRECT? NO
     Route: 055
     Dates: start: 2014
  2. SPIRIVA [Suspect]
     Active Substance: TIOTROPIUM BROMIDE MONOHYDRATE
     Indication: EMPHYSEMA
     Dosage: USED 3 CAPSULES IN ONE DAY.
     Route: 055
     Dates: start: 20180219, end: 20180219

REACTIONS (6)
  - Cardiac failure congestive [Unknown]
  - Coronary artery perforation [Unknown]
  - Sleep apnoea syndrome [Unknown]
  - Product quality issue [Unknown]
  - Product quality issue [Unknown]
  - Overdose [Recovered/Resolved]

NARRATIVE: CASE EVENT DATE: 201608
